FAERS Safety Report 10255898 (Version 1)
Quarter: 2014Q2

REPORT INFORMATION
  Report Type: Spontaneous
  Country: GB (occurrence: GB)
  Receive Date: 20140624
  Receipt Date: 20140624
  Transmission Date: 20141212
  Serious: Yes (Hospitalization, Other)
  Sender: FDA-Public Use
  Company Number: GB-BRISTOL-MYERS SQUIBB COMPANY-21027701

PATIENT
  Age: 57 Year
  Sex: Female

DRUGS (1)
  1. IPILIMUMAB [Suspect]
     Dates: start: 201009

REACTIONS (4)
  - Meningitis aseptic [Recovered/Resolved]
  - Adrenal insufficiency [Unknown]
  - Malignant neoplasm progression [Unknown]
  - Myocardial infarction [Unknown]
